FAERS Safety Report 16270290 (Version 1)
Quarter: 2019Q2

REPORT INFORMATION
  Report Type: Spontaneous
  Country: US (occurrence: US)
  Receive Date: 20190329
  Receipt Date: 20190329
  Transmission Date: 20190711
  Serious: No
  Sender: FDA-Public Use
  Company Number: None

PATIENT
  Age: 48 Year
  Sex: Female

DRUGS (1)
  1. IMATINIB 400MG TAB (X30) [Suspect]
     Active Substance: IMATINIB
     Indication: GASTROINTESTINAL STROMAL TUMOUR
     Route: 048
     Dates: start: 201903

REACTIONS (5)
  - Neck mass [None]
  - Rash [None]
  - Lymphadenopathy [None]
  - Neutropenia [None]
  - Tenderness [None]

NARRATIVE: CASE EVENT DATE: 20190329
